FAERS Safety Report 20497332 (Version 2)
Quarter: 2024Q1

REPORT INFORMATION
  Report Type: Spontaneous
  Country: HR (occurrence: HR)
  Receive Date: 20220221
  Receipt Date: 20240219
  Transmission Date: 20240409
  Serious: Yes (Life-Threatening, Hospitalization, Disabling)
  Sender: FDA-Public Use
  Company Number: HR-002147023-NVSC2022HR028605

PATIENT

DRUGS (16)
  1. RUXOLITINIB [Suspect]
     Active Substance: RUXOLITINIB
     Indication: Myelofibrosis
     Dosage: 30 MG (15 MG, 2 IN 1 D)
     Route: 048
     Dates: start: 20210929, end: 20211019
  2. RUXOLITINIB [Suspect]
     Active Substance: RUXOLITINIB
     Dosage: 10 MG (5 MG,2 IN 1 D)
     Route: 048
     Dates: start: 20211020, end: 20211026
  3. RUXOLITINIB [Suspect]
     Active Substance: RUXOLITINIB
     Dosage: 10 MG (5 MG.2 IN 1 D)
     Route: 048
     Dates: start: 20211222
  4. NAVITOCLAX [Suspect]
     Active Substance: NAVITOCLAX
     Indication: Myelofibrosis
     Dosage: 200 MG (200 MG,1 IN 1 D)
     Route: 048
     Dates: start: 20210929, end: 20211026
  5. NAVITOCLAX [Suspect]
     Active Substance: NAVITOCLAX
     Dosage: 200 MG (200 MG,1 IN 1 D)
     Route: 048
     Dates: start: 20211222
  6. NAVITOCLAX [Suspect]
     Active Substance: NAVITOCLAX
     Dosage: UNK
     Route: 065
     Dates: start: 20220413
  7. ALLOPURINOL [Concomitant]
     Active Substance: ALLOPURINOL
     Indication: Hyperuricaemia
     Dosage: 100 MG (100 MG,1 IN 1 D)
     Route: 048
     Dates: start: 2018
  8. CONTROLOC [Concomitant]
     Active Substance: PANTOPRAZOLE SODIUM
     Indication: Prophylaxis
     Dosage: 20 MG (20 MG,1 IN 1 D)
     Route: 048
     Dates: start: 2018
  9. TRENTAL [Concomitant]
     Active Substance: PENTOXIFYLLINE
     Indication: Myalgia
     Dosage: 400 MG (400 MG,1 IN 1 D)
     Route: 048
     Dates: start: 2018
  10. EUTHYROX [Concomitant]
     Active Substance: LEVOTHYROXINE SODIUM
     Indication: Hypothyroidism
     Dosage: 75 UG (75 UG,1 IN 1 D)
     Route: 048
     Dates: start: 1985
  11. CALCIUM [Concomitant]
     Active Substance: CALCIUM
     Indication: Osteoporosis
     Dosage: 500 UG (500 UG,1 IN 1 D)
     Route: 048
     Dates: start: 2011
  12. CHOLECALCIFEROL [Concomitant]
     Active Substance: CHOLECALCIFEROL
     Indication: Osteoporosis
     Dosage: 4 UNK (GTT) (1 IN 1 D)
     Route: 048
     Dates: start: 2011
  13. VITAMIN B12 [Concomitant]
     Active Substance: CYANOCOBALAMIN
     Indication: Prophylaxis
     Dosage: 33.33 UG (1000 MCG, 1 IN 1 M)
     Route: 030
     Dates: start: 2011
  14. PLIBEX [Concomitant]
     Indication: Prophylaxis
     Dosage: 4 DOSAGE FORM (2 TABLET,2 IN 1 D)
     Route: 048
     Dates: start: 2011
  15. BISOPROLOL FUMARATE [Concomitant]
     Active Substance: BISOPROLOL FUMARATE
     Indication: Palpitations
     Dosage: 2.5 MG (2.5 MG,1 IN 1 D)
     Route: 048
     Dates: start: 2013
  16. FOLIC ACID [Concomitant]
     Active Substance: FOLIC ACID
     Indication: Prophylaxis
     Dosage: 5 MG (5 MG, 1 IN 1 D)
     Route: 048
     Dates: start: 2011

REACTIONS (1)
  - Pancytopenia [Recovered/Resolved]

NARRATIVE: CASE EVENT DATE: 20211027
